FAERS Safety Report 14015452 (Version 1)
Quarter: 2017Q3

REPORT INFORMATION
  Report Type: Spontaneous
  Country: GB (occurrence: GB)
  Receive Date: 20170927
  Receipt Date: 20170927
  Transmission Date: 20171128
  Serious: Yes (Other)
  Sender: FDA-Public Use
  Company Number: GB-009507513-1709GBR011750

PATIENT
  Age: 30 Year
  Sex: Female
  Weight: 59 kg

DRUGS (3)
  1. BEDRANOL [Concomitant]
     Active Substance: PROPRANOLOL HYDROCHLORIDE
     Dosage: UNK
  2. NEXPLANON [Suspect]
     Active Substance: ETONOGESTREL
     Indication: CONTRACEPTION
     Dates: start: 20170409, end: 20170725
  3. CETIRIZINE HYDROCHLORIDE. [Concomitant]
     Active Substance: CETIRIZINE HYDROCHLORIDE
     Dosage: UNK

REACTIONS (9)
  - Eye swelling [Recovered/Resolved]
  - Migraine with aura [Recovered/Resolved]
  - Rhinitis allergic [Recovered/Resolved]
  - Depression suicidal [Recovering/Resolving]
  - Condition aggravated [Unknown]
  - Post-traumatic stress disorder [Unknown]
  - Influenza like illness [Recovered/Resolved]
  - Anxiety [Recovered/Resolved with Sequelae]
  - Intrusive thoughts [Unknown]
